FAERS Safety Report 15942130 (Version 1)
Quarter: 2019Q1

REPORT INFORMATION
  Report Type: Spontaneous
  Country: US (occurrence: US)
  Receive Date: 20190211
  Receipt Date: 20190211
  Transmission Date: 20190417
  Serious: Yes (Death)
  Sender: FDA-Public Use
  Company Number: None

PATIENT
  Age: 52 Year
  Sex: Male
  Weight: 130 kg

DRUGS (4)
  1. BUSPIRONE [Suspect]
     Active Substance: BUSPIRONE HYDROCHLORIDE
     Route: 048
  2. BUSPIRONE [Concomitant]
     Active Substance: BUSPIRONE HYDROCHLORIDE
  3. TRAZODONE [Concomitant]
     Active Substance: TRAZODONE HYDROCHLORIDE
  4. TRAZODONE [Suspect]
     Active Substance: TRAZODONE HYDROCHLORIDE
     Route: 048

REACTIONS (14)
  - Mental status changes [None]
  - Acute kidney injury [None]
  - Respiratory failure [None]
  - Hyperthermia [None]
  - Metabolic acidosis [None]
  - Loss of consciousness [None]
  - Acute myocardial infarction [None]
  - Shock [None]
  - Multiple organ dysfunction syndrome [None]
  - Rhabdomyolysis [None]
  - Serotonin syndrome [None]
  - Encephalopathy [None]
  - Coagulopathy [None]
  - Hypotension [None]

NARRATIVE: CASE EVENT DATE: 20180909
